FAERS Safety Report 4598082-X (Version None)
Quarter: 2005Q1

REPORT INFORMATION
  Report Type: 
  Country: None (occurrence: None)
  Receive Date: 20050304
  Receipt Date: 20050223
  Transmission Date: 20050727
  Serious: Yes (Life-Threatening, Other)
  Sender: FDA-Public Use
  Company Number: GB-ABBOTT-05P-167-0291802-00

PATIENT
  Age: 51 Year
  Sex: Female

DRUGS (3)
  1. VALPROATE SODIUM [Suspect]
     Indication: EPILEPSY
     Route: 048
     Dates: start: 20041104
  2. MONTELUKAST SODIUM [Interacting]
     Indication: ASTHMA
     Route: 048
     Dates: start: 20041228
  3. PHENYTOIN [Interacting]
     Route: 048
     Dates: start: 20010101

REACTIONS (3)
  - CONDITION AGGRAVATED [None]
  - DRUG INTERACTION [None]
  - EPILEPSY [None]
